FAERS Safety Report 8199749-7 (Version None)
Quarter: 2012Q1

REPORT INFORMATION
  Report Type: 
  Country: None (occurrence: None)
  Receive Date: 20120311
  Receipt Date: 20120229
  Transmission Date: 20120608
  Serious: Yes (Other)
  Sender: FDA-Public Use
  Company Number: PHFR2003GB01048

PATIENT
  Sex: Female

DRUGS (3)
  1. CLOZARIL [Suspect]
     Dosage: 275 MG, QD
     Route: 048
     Dates: start: 20010828, end: 20030221
  2. ZUCLOPENTHIXOL [Suspect]
  3. BENZODIAZEPINES [Concomitant]

REACTIONS (4)
  - URINARY TRACT INFECTION [None]
  - RENAL DISORDER [None]
  - OVERWEIGHT [None]
  - NEUTROPENIA [None]
